FAERS Safety Report 19140941 (Version 1)
Quarter: 2021Q2

REPORT INFORMATION
  Report Type: Report from Study
  Country: IL (occurrence: IL)
  Receive Date: 20210415
  Receipt Date: 20210415
  Transmission Date: 20210717
  Serious: Yes (Hospitalization, Other)
  Sender: FDA-Public Use
  Company Number: IL-TAKEDA-2021TUS022185

PATIENT
  Sex: Female

DRUGS (2)
  1. VELAGLUCERASE ALFA [Suspect]
     Active Substance: VELAGLUCERASE ALFA
     Indication: GAUCHER^S DISEASE
     Dosage: 15 U/KG, Q2WEEKS
     Route: 065
     Dates: start: 20190515
  2. METHOTREXATE. [Concomitant]
     Active Substance: METHOTREXATE
     Indication: ABORTION INDUCED
     Dosage: UNK UNK, ONCE
     Route: 065
     Dates: start: 202102

REACTIONS (3)
  - Exposure during pregnancy [Unknown]
  - Ulcerative keratitis [Recovered/Resolved]
  - Abortion induced [Unknown]

NARRATIVE: CASE EVENT DATE: 20201118
